FAERS Safety Report 15164417 (Version 1)
Quarter: 2018Q3

REPORT INFORMATION
  Report Type: Spontaneous
  Country: US (occurrence: US)
  Receive Date: 20180719
  Receipt Date: 20180719
  Transmission Date: 20181010
  Serious: Yes (Hospitalization, Other)
  Sender: FDA-Public Use
  Company Number: US-ASTELLAS-2018US025116

PATIENT
  Age: 17 Year
  Sex: Male

DRUGS (1)
  1. AMBISOME [Suspect]
     Active Substance: AMPHOTERICIN B
     Indication: PRODUCT USED FOR UNKNOWN INDICATION
     Dosage: 400 MG, ONCE DAILY (24 HOURS) IN 400 ML D5W AND TO INFUSE OVER 4 HOURS BY ECLIPSE 400/100 INFUSION D
     Route: 042

REACTIONS (4)
  - Blood potassium abnormal [Unknown]
  - Flushing [Recovering/Resolving]
  - Dyspnoea [Recovering/Resolving]
  - Incorrect drug administration rate [Unknown]
